FAERS Safety Report 4293430-2 (Version None)
Quarter: 2004Q1

REPORT INFORMATION
  Report Type: 
  Country: None (occurrence: None)
  Receive Date: 20040212
  Receipt Date: 20030625
  Transmission Date: 20041129
  Serious: Yes (Other)
  Sender: FDA-Public Use
  Company Number: US-GLAXOSMITHKLINE-A0413946A

PATIENT
  Age: 33 Year
  Sex: Female
  Weight: 68.2 kg

DRUGS (4)
  1. PAXIL [Suspect]
     Dosage: 30MG TWICE PER DAY
     Route: 048
     Dates: start: 19960615, end: 20030624
  2. PAXIL CR [Suspect]
     Dosage: 25MG PER DAY
     Route: 048
     Dates: start: 20030624
  3. WELLBUTRIN SR [Concomitant]
     Route: 048
     Dates: start: 19970115
  4. TRAZODONE HCL [Concomitant]
     Dosage: 50MG AS REQUIRED
     Route: 048
     Dates: start: 19961008

REACTIONS (6)
  - CHOLELITHIASIS [None]
  - CHROMATURIA [None]
  - DEPRESSION [None]
  - FATIGUE [None]
  - LIVER FUNCTION TEST ABNORMAL [None]
  - NAUSEA [None]
